FAERS Safety Report 7191137-5 (Version None)
Quarter: 2010Q4

REPORT INFORMATION
  Report Type: 
  Country: None (occurrence: None)
  Receive Date: 20101222
  Receipt Date: 20101222
  Transmission Date: 20110411
  Serious: No
  Sender: FDA-Public Use
  Company Number: None

PATIENT
  Sex: Male

DRUGS (1)
  1. MINOCYCLINE 100MG [Suspect]
     Indication: ACNE
     Dosage: 100 MG 1 PO BID ORAL
     Route: 048
     Dates: start: 20100401, end: 20101201

REACTIONS (2)
  - HEADACHE [None]
  - NAUSEA [None]
